FAERS Safety Report 10214603 (Version 2)
Quarter: 2014Q2

REPORT INFORMATION
  Report Type: Spontaneous
  Country: IT (occurrence: IT)
  Receive Date: 20140603
  Receipt Date: 20140609
  Transmission Date: 20141212
  Serious: Yes (Hospitalization)
  Sender: FDA-Public Use
  Company Number: IT-BRISTOL-MYERS SQUIBB COMPANY-20862405

PATIENT
  Age: 78 Year
  Sex: Female

DRUGS (6)
  1. METFORMIN HCL [Suspect]
     Indication: DIABETES MELLITUS
     Route: 048
     Dates: start: 20110530, end: 20140519
  2. GLICLAZIDE [Suspect]
     Indication: DIABETES MELLITUS
     Dosage: MODIFIED RELEASE TABLET
     Route: 048
     Dates: start: 20110530, end: 20140519
  3. LIPONORM [Concomitant]
     Dosage: FILM COATED TABLETS.
     Route: 048
     Dates: start: 20110530, end: 20140519
  4. TENORMIN [Concomitant]
     Dosage: TABLET
     Route: 048
     Dates: start: 20110530, end: 20140519
  5. CO-DIOVAN [Concomitant]
     Dosage: 1 DF: 80 MG/12.5 MG (28 TABLETS IN BLISTER).
     Dates: start: 20110530, end: 20140519
  6. CYMBALTA [Concomitant]
     Dosage: 28 CAPSULES.
     Route: 048
     Dates: start: 20110530, end: 20140519

REACTIONS (1)
  - Hypoglycaemia [Recovered/Resolved]
